FAERS Safety Report 17857176 (Version 1)
Quarter: 2020Q2

REPORT INFORMATION
  Report Type: Spontaneous
  Country: US (occurrence: US)
  Receive Date: 20200603
  Receipt Date: 20200603
  Transmission Date: 20200714
  Serious: No
  Sender: FDA-Public Use
  Company Number: US-GE HEALTHCARE LIFE SCIENCES-2020CSU001082

PATIENT
  Age: 56 Year
  Sex: Female

DRUGS (3)
  1. OMNIPAQUE [Suspect]
     Active Substance: IOHEXOL
     Indication: ANGIOGRAM
     Dosage: 30 ML, RIGHT ANTECUBITAL, SINGLE
     Route: 042
     Dates: start: 20200309, end: 20200309
  2. OMNIPAQUE [Suspect]
     Active Substance: IOHEXOL
     Indication: FIBRIN D DIMER INCREASED
  3. OMNIPAQUE [Suspect]
     Active Substance: IOHEXOL
     Indication: MUSCULOSKELETAL CHEST PAIN

REACTIONS (1)
  - Injection site extravasation [Unknown]

NARRATIVE: CASE EVENT DATE: 20200309
